FAERS Safety Report 9100632 (Version 1)
Quarter: 2013Q1

REPORT INFORMATION
  Report Type: Spontaneous
  Country: US (occurrence: None)
  Receive Date: 20130220
  Receipt Date: 20130220
  Transmission Date: 20140127
  Serious: Yes (Hospitalization)
  Sender: FDA-Public Use
  Company Number: None

PATIENT
  Age: 81 Year
  Sex: Male
  Weight: 89 kg

DRUGS (1)
  1. XARELTO 20MG JANSSEN [Suspect]
     Indication: ATRIAL FIBRILLATION
     Route: 048
     Dates: start: 20121224, end: 20130110

REACTIONS (4)
  - Rectal haemorrhage [None]
  - Dizziness [None]
  - Faeces discoloured [None]
  - Duodenal ulcer [None]
